FAERS Safety Report 5765762-X (Version None)
Quarter: 2008Q2

REPORT INFORMATION
  Report Type: 
  Country: None (occurrence: None)
  Receive Date: 20080609
  Receipt Date: 20080609
  Transmission Date: 20081010
  Serious: Yes (Hospitalization)
  Sender: FDA-Public Use
  Company Number: None

PATIENT
  Sex: Female
  Weight: 105.4 kg

DRUGS (4)
  1. CISPLATIN [Suspect]
     Dosage: 100 MG
  2. DOXORUBICIN HYDROCHLORIDE [Suspect]
     Dosage: 90 MG
  3. G-CSF (FILGRASTIM, AMGEN) [Suspect]
     Dosage: 6 MG
  4. TAXOL [Suspect]
     Dosage: 320 MG

REACTIONS (9)
  - BACTERIAL INFECTION [None]
  - CATHETER RELATED INFECTION [None]
  - CATHETER SITE ERYTHEMA [None]
  - CATHETER SITE RELATED REACTION [None]
  - CULTURE POSITIVE [None]
  - DECREASED APPETITE [None]
  - FEELING ABNORMAL [None]
  - INDURATION [None]
  - PAIN [None]
